FAERS Safety Report 8250366-X (Version None)
Quarter: 2012Q2

REPORT INFORMATION
  Report Type: 
  Country: None (occurrence: None)
  Receive Date: 20120402
  Receipt Date: 20120327
  Transmission Date: 20120825
  Serious: Yes (Other)
  Sender: FDA-Public Use
  Company Number: US-JNJFOC-20100808193

PATIENT
  Sex: Male
  Weight: 109.77 kg

DRUGS (4)
  1. LEVAQUIN [Suspect]
     Indication: ACUTE SINUSITIS
     Route: 048
     Dates: start: 20080612
  2. LEVAQUIN [Suspect]
     Indication: RESPIRATORY TRACT INFECTION
     Route: 048
     Dates: start: 20080612
  3. LEVAQUIN [Suspect]
     Route: 048
     Dates: start: 20080613, end: 20080703
  4. LEVAQUIN [Suspect]
     Route: 048
     Dates: start: 20080613, end: 20080703

REACTIONS (4)
  - ROTATOR CUFF SYNDROME [None]
  - TENDONITIS [None]
  - TENDON RUPTURE [None]
  - BURSA INJURY [None]
